FAERS Safety Report 4611494-0 (Version None)
Quarter: 2005Q1

REPORT INFORMATION
  Report Type: 
  Country: None (occurrence: None)
  Receive Date: 20050317
  Receipt Date: 20050103
  Transmission Date: 20050727
  Serious: Yes (Hospitalization)
  Sender: FDA-Public Use
  Company Number: US-ROCHE-391481

PATIENT
  Age: 43 Year
  Sex: Female
  Weight: 78.5 kg

DRUGS (4)
  1. PEGASYS [Suspect]
     Indication: HEPATITIS C
     Route: 058
     Dates: start: 20040421
  2. COPEGUS [Suspect]
     Indication: HEPATITIS C
     Dosage: 3 TABS/AM, 2 PM.
     Route: 048
     Dates: start: 20040421
  3. COPEGUS [Suspect]
     Route: 048
  4. TEGRETOL [Concomitant]
     Route: 048
     Dates: start: 19950615

REACTIONS (19)
  - ANAEMIA [None]
  - ASTHENIA [None]
  - DIZZINESS [None]
  - DRUG WITHDRAWAL SYNDROME [None]
  - FATIGUE [None]
  - HEADACHE [None]
  - HYPOAESTHESIA [None]
  - INSOMNIA [None]
  - LYMPHADENOPATHY [None]
  - NASAL DISORDER [None]
  - NAUSEA [None]
  - OEDEMA PERIPHERAL [None]
  - PAIN [None]
  - PARAESTHESIA [None]
  - SKIN DISCOLOURATION [None]
  - SKIN IRRITATION [None]
  - SYNCOPE [None]
  - TREATMENT NONCOMPLIANCE [None]
  - VISION BLURRED [None]
